FAERS Safety Report 4987027-6 (Version None)
Quarter: 2006Q2

REPORT INFORMATION
  Report Type: 
  Country: None (occurrence: None)
  Receive Date: 20060501
  Receipt Date: 20060424
  Transmission Date: 20061013
  Serious: Yes (Hospitalization)
  Sender: FDA-Public Use
  Company Number: FR-AVENTIS-200611523FR

PATIENT
  Age: 63 Year
  Sex: Female
  Weight: 95 kg

DRUGS (8)
  1. LASILIX [Suspect]
     Indication: ESSENTIAL HYPERTENSION
     Route: 048
     Dates: end: 20051101
  2. LASILIX [Suspect]
     Route: 048
     Dates: start: 20051101
  3. DIGOXIN [Suspect]
     Indication: ATRIAL FIBRILLATION
     Route: 048
     Dates: end: 20060309
  4. DIGOXIN [Suspect]
     Indication: ATRIAL FLUTTER
     Route: 048
     Dates: end: 20060309
  5. CORDARONE [Suspect]
     Indication: ATRIAL FIBRILLATION
     Route: 048
  6. CORDARONE [Suspect]
     Indication: ATRIAL FLUTTER
     Route: 048
  7. PREVISCAN [Concomitant]
     Indication: DRUG USE FOR UNKNOWN INDICATION
     Route: 048
  8. FEMARA [Concomitant]
     Indication: DRUG USE FOR UNKNOWN INDICATION
     Route: 048

REACTIONS (10)
  - AMNESIA [None]
  - ATRIAL FIBRILLATION [None]
  - CARDIAC FAILURE [None]
  - DISEASE RECURRENCE [None]
  - DRUG INTERACTION [None]
  - EPILEPSY [None]
  - HYPOKALAEMIA [None]
  - SYNCOPE [None]
  - TORSADE DE POINTES [None]
  - URINARY INCONTINENCE [None]
